FAERS Safety Report 10220036 (Version 2)
Quarter: 2014Q2

REPORT INFORMATION
  Report Type: Spontaneous
  Country: US (occurrence: US)
  Receive Date: 20140605
  Receipt Date: 20140619
  Transmission Date: 20141212
  Serious: No
  Sender: FDA-Public Use
  Company Number: US-PFIZER INC-2014151978

PATIENT
  Age: 56 Year
  Sex: Female

DRUGS (3)
  1. BOSULIF [Suspect]
     Indication: CHRONIC MYELOID LEUKAEMIA
     Dosage: 500 MG, UNK
     Dates: start: 20140123, end: 2014
  2. BOSULIF [Suspect]
     Dosage: 500 MG, UNK
     Dates: start: 20140123
  3. BOSULIF [Suspect]
     Dosage: 500 MG, ONCE DAILY
     Dates: start: 20140502

REACTIONS (6)
  - Nausea [Recovering/Resolving]
  - Rash [Unknown]
  - Headache [Unknown]
  - Vomiting [Unknown]
  - Diarrhoea [Unknown]
  - Fatigue [Unknown]
